FAERS Safety Report 10936395 (Version 1)
Quarter: 2015Q1

REPORT INFORMATION
  Report Type: Spontaneous
  Country: US (occurrence: US)
  Receive Date: 20150321
  Receipt Date: 20150321
  Transmission Date: 20150721
  Serious: No
  Sender: FDA-Public Use
  Company Number: US-BIOGENIDEC-2015BI014163

PATIENT
  Sex: Male

DRUGS (1)
  1. AVONEX [Suspect]
     Active Substance: INTERFERON BETA-1A
     Indication: MULTIPLE SCLEROSIS
     Route: 030
     Dates: start: 20120903

REACTIONS (11)
  - Fatigue [Unknown]
  - Haemorrhage [Unknown]
  - Chills [Unknown]
  - Adverse event [Unknown]
  - General symptom [Unknown]
  - Injection site pain [Unknown]
  - Insomnia [Unknown]
  - Injection site haemorrhage [Unknown]
  - Mental disorder [Unknown]
  - Poor quality sleep [Unknown]
  - Accident [Unknown]
